FAERS Safety Report 20610675 (Version 1)
Quarter: 2022Q1

REPORT INFORMATION
  Report Type: Spontaneous
  Country: FR (occurrence: FR)
  Receive Date: 20220318
  Receipt Date: 20220318
  Transmission Date: 20220423
  Serious: Yes (Other)
  Sender: FDA-Public Use
  Company Number: None

PATIENT
  Age: 28 Year
  Sex: Male
  Weight: 70 kg

DRUGS (2)
  1. PAROXETINE [Suspect]
     Active Substance: PAROXETINE
     Indication: Bereavement
     Dosage: 20MG, THEN 10MG; PAROXETINE BASE
     Route: 048
     Dates: start: 20160901, end: 20190201
  2. PAROXETINE [Suspect]
     Active Substance: PAROXETINE
     Indication: Anxiety

REACTIONS (7)
  - Male sexual dysfunction [Not Recovered/Not Resolved]
  - Depression suicidal [Not Recovered/Not Resolved]
  - Anhedonia [Not Recovered/Not Resolved]
  - Withdrawal syndrome [Not Recovered/Not Resolved]
  - Gastrointestinal bacterial overgrowth [Not Recovered/Not Resolved]
  - Vision blurred [Not Recovered/Not Resolved]
  - Tinnitus [Not Recovered/Not Resolved]

NARRATIVE: CASE EVENT DATE: 20190201
